FAERS Safety Report 8556386-X (Version None)
Quarter: 2012Q3

REPORT INFORMATION
  Report Type: 
  Country: None (occurrence: None)
  Receive Date: 20120801
  Receipt Date: 20120725
  Transmission Date: 20120928
  Serious: Yes (Other)
  Sender: FDA-Public Use
  Company Number: PHHY2012CA051662

PATIENT
  Sex: Female

DRUGS (10)
  1. VENLAFAXINE [Concomitant]
     Indication: DEPRESSION
     Dosage: 150 MG, 1 PER DAY
  2. SYNTHROID [Concomitant]
     Dosage: 0.125 MG, QD (ALT DAYS)
  3. BECLOMETHASONE AQUEOUS [Concomitant]
     Indication: NASAL CONGESTION
     Dosage: 1-2 PER DAY
  4. CETIRIZINE HCL [Concomitant]
     Dosage: 10 MG, 1 X DAILY
  5. VITAMIN D [Concomitant]
     Dosage: 1000 IU, 1 X DAILY
  6. TRAZODONE HYDROCHLORIDE [Concomitant]
     Indication: SLEEP DISORDER
     Dosage: 25 MG. 0.5 OR 1 AS REQUIRED
  7. CLONAZEPAM [Concomitant]
     Indication: ANXIETY
     Dosage: 0.5 MG, 1 PER DAY
  8. ZOLEDRONOC ACID [Suspect]
     Indication: OSTEOPOROSIS
     Dosage: ANNUALLY
     Route: 042
     Dates: start: 20101004
  9. OMEPRAZOLE (PRISOLEC) [Concomitant]
     Indication: HYPERCHLORHYDRIA
     Dosage: 20 MG, 1-2 PER DAY
  10. SYNTHROID [Concomitant]
     Indication: AUTOIMMUNE THYROIDITIS
     Dosage: 0.112 MG, QD (ALT DAYS)

REACTIONS (2)
  - BREAST CALCIFICATIONS [None]
  - BREAST CANCER [None]
